FAERS Safety Report 5279216-0 (Version None)
Quarter: 2007Q1

REPORT INFORMATION
  Report Type: 
  Country: None (occurrence: None)
  Receive Date: 20070328
  Receipt Date: 20070326
  Transmission Date: 20070707
  Serious: Yes (Other)
  Sender: FDA-Public Use
  Company Number: JP-BRISTOL-MYERS SQUIBB COMPANY-13727086

PATIENT
  Age: 53 Year
  Sex: Female

DRUGS (5)
  1. METHOTREXATE [Suspect]
     Indication: DERMATOMYOSITIS
     Dates: start: 20030401
  2. PREDNISOLONE [Suspect]
     Indication: DERMATOMYOSITIS
     Dates: start: 20030501
  3. METHYLPREDNISOLONE 16MG TAB [Suspect]
     Indication: DERMATOMYOSITIS
     Dates: start: 19990101
  4. VOGLIBOSE [Suspect]
     Indication: DIABETES MELLITUS
  5. INSULIN [Suspect]
     Dates: start: 20030101

REACTIONS (1)
  - PNEUMATOSIS INTESTINALIS [None]
